FAERS Safety Report 10687705 (Version 1)
Quarter: 2015Q1

REPORT INFORMATION
  Report Type: Spontaneous
  Country: HR (occurrence: HR)
  Receive Date: 20150102
  Receipt Date: 20150102
  Transmission Date: 20150720
  Serious: Yes (Hospitalization)
  Sender: FDA-Public Use
  Company Number: PHHY2014HR169707

PATIENT
  Age: 40 Year
  Sex: Male
  Weight: 87 kg

DRUGS (4)
  1. FLUOROURACIL PLIVA [Suspect]
     Active Substance: FLUOROURACIL
     Indication: GASTRIC CANCER
     Dosage: 850 MG, QD
     Route: 042
     Dates: start: 20141103, end: 20141107
  2. DEXAMETHASONE. [Concomitant]
     Active Substance: DEXAMETHASONE
     Indication: PREMEDICATION
     Dosage: 12 MG, QD
     Route: 042
  3. REGLAN INJ [Concomitant]
     Indication: PREMEDICATION
     Dosage: 5 MG, UNK
     Route: 065
  4. CALCIUM FOLINATE [Suspect]
     Active Substance: LEUCOVORIN CALCIUM
     Indication: GASTRIC CANCER
     Dosage: 40 MG, QD
     Route: 042
     Dates: start: 20141103, end: 20141107

REACTIONS (2)
  - Aphthous stomatitis [Recovered/Resolved]
  - Febrile neutropenia [Recovered/Resolved]
